FAERS Safety Report 22117314 (Version 1)
Quarter: 2023Q1

REPORT INFORMATION
  Report Type: Spontaneous
  Country: US (occurrence: US)
  Receive Date: 20230320
  Receipt Date: 20230320
  Transmission Date: 20230418
  Serious: Yes (Hospitalization)
  Sender: FDA-Public Use
  Company Number: US-UPSHER-SMITH LABORATORIES, LLC-2023USL00218

PATIENT
  Age: 47 Year
  Sex: Female

DRUGS (4)
  1. SUMATRIPTAN SUCCINATE [Suspect]
     Active Substance: SUMATRIPTAN SUCCINATE
     Indication: Muscle spasms
     Dosage: UNKNOWN
  2. SUMATRIPTAN SUCCINATE [Suspect]
     Active Substance: SUMATRIPTAN SUCCINATE
     Dosage: 50 MG
     Route: 048
  3. TIZANIDINE [Suspect]
     Active Substance: TIZANIDINE
     Dosage: UNKNOWN
  4. TIZANIDINE [Suspect]
     Active Substance: TIZANIDINE
     Dosage: 36 MG
     Route: 048

REACTIONS (1)
  - Stress cardiomyopathy [Recovered/Resolved]
